FAERS Safety Report 14475778 (Version 1)
Quarter: 2018Q1

REPORT INFORMATION
  Report Type: Spontaneous
  Country: US (occurrence: US)
  Receive Date: 20180131
  Receipt Date: 20180131
  Transmission Date: 20180509
  Serious: No
  Sender: FDA-Public Use
  Company Number: None

PATIENT
  Age: 37 Year
  Sex: Male

DRUGS (1)
  1. NEXAVAR [Suspect]
     Active Substance: SORAFENIB
     Indication: HEPATIC CANCER
     Route: 048
     Dates: start: 20171222

REACTIONS (5)
  - Skin disorder [None]
  - Nausea [None]
  - Dyspepsia [None]
  - Rash [None]
  - Asthenia [None]

NARRATIVE: CASE EVENT DATE: 20171222
